FAERS Safety Report 6580371-0 (Version None)
Quarter: 2010Q1

REPORT INFORMATION
  Report Type: 
  Country: None (occurrence: None)
  Receive Date: 20100212
  Receipt Date: 20100201
  Transmission Date: 20100710
  Serious: Yes (Hospitalization)
  Sender: FDA-Public Use
  Company Number: PHHO2010US02246

PATIENT
  Age: 69 Year
  Sex: Male
  Weight: 92.971 kg

DRUGS (13)
  1. AFINITOR [Suspect]
     Indication: THYROID CANCER
     Dosage: 10 MG, QD
     Route: 048
     Dates: start: 20091209, end: 20100118
  2. ALTACE [Concomitant]
  3. GLIPIZIDE [Concomitant]
  4. INSULIN [Concomitant]
  5. LEVOTHYROXINE SODIUM [Concomitant]
  6. METFORMIN HCL [Concomitant]
  7. METOPROLOL TARTRATE [Concomitant]
  8. MULTI-VITAMINS [Concomitant]
  9. TUMS [Concomitant]
  10. VITAMIN C [Concomitant]
  11. ZOCOR [Concomitant]
  12. ASPIRIN [Concomitant]
  13. HYDROCHLOROTHIAZIDE [Concomitant]

REACTIONS (17)
  - AORTIC VALVE STENOSIS [None]
  - CARDIAC FAILURE CONGESTIVE [None]
  - CONFUSIONAL STATE [None]
  - DYSPNOEA [None]
  - DYSPNOEA EXERTIONAL [None]
  - DYSPNOEA PAROXYSMAL NOCTURNAL [None]
  - HAEMATOCRIT DECREASED [None]
  - HAEMOPTYSIS [None]
  - OEDEMA [None]
  - ORTHOPNOEA [None]
  - PNEUMONIA ASPIRATION [None]
  - PRODUCTIVE COUGH [None]
  - RENAL FAILURE ACUTE [None]
  - VALVULOPLASTY CARDIAC [None]
  - VOCAL CORD LIPOINJECTION [None]
  - VOCAL CORD PARALYSIS [None]
  - WAIST CIRCUMFERENCE INCREASED [None]
